FAERS Safety Report 4376398-X (Version None)
Quarter: 2004Q2

REPORT INFORMATION
  Report Type: 
  Country: None (occurrence: None)
  Receive Date: 20040608
  Receipt Date: 20040524
  Transmission Date: 20050107
  Serious: Yes (Hospitalization)
  Sender: FDA-Public Use
  Company Number: USA-2004-0015309

PATIENT
  Age: 71 Year
  Sex: Female

DRUGS (14)
  1. OXYCONTIN [Suspect]
     Indication: NEURALGIA
     Dosage: ORAL
     Route: 048
     Dates: start: 20040427
  2. PLACEBO (PLACEBO) [Suspect]
     Indication: NEURALGIA
     Dates: start: 20040427
  3. FAMVIR [Suspect]
     Indication: NEURALGIA
     Dosage: 500 MG, TID
     Dates: start: 20040427
  4. GABAPENTIN [Suspect]
     Indication: NEURALGIA
     Dates: start: 20040427
  5. PHENERGAN ^NATRAPHARM^ (PROMETHAZINE HYDROCHLORIDE) [Suspect]
     Indication: NEURALGIA
     Dosage: 50 MG, Q6H PRN
     Dates: start: 20040427
  6. MIACALCIN [Concomitant]
  7. MOBIC [Concomitant]
  8. ACETAMINOPHEN [Concomitant]
  9. HYDROCHLOROTHIAZIDE [Concomitant]
  10. MIRALAX [Concomitant]
  11. MULTIVIT (VITAMINS NOS) TABLET [Concomitant]
  12. CALCIUM TABLET [Concomitant]
  13. CELEXA [Concomitant]
  14. VITAMIN C (ASCORBIC ACID) TABLET [Concomitant]

REACTIONS (2)
  - DIZZINESS [None]
  - HYPOVOLAEMIA [None]
